FAERS Safety Report 5594222-4 (Version None)
Quarter: 2007Q4

REPORT INFORMATION
  Report Type: 
  Country: None (occurrence: None)
  Receive Date: 20071218
  Receipt Date: 20070702
  Transmission Date: 20080405
  Serious: Yes (Hospitalization)
  Sender: FDA-Public Use
  Company Number: 2007054941

PATIENT
  Sex: Female

DRUGS (2)
  1. BEXTRA [Suspect]
     Indication: PAIN
     Dosage: 20 MG (20 MG, 1 IN 1 D)
     Dates: start: 20030411, end: 20040131
  2. VIOXX [Suspect]
     Dosage: 1 IN 1 D
     Dates: start: 19990601, end: 20011201

REACTIONS (1)
  - MYOCARDIAL INFARCTION [None]
